FAERS Safety Report 5660170-4 (Version None)
Quarter: 2008Q1

REPORT INFORMATION
  Report Type: 
  Country: None (occurrence: None)
  Receive Date: 20080212
  Receipt Date: 20070222
  Transmission Date: 20080703
  Serious: No
  Sender: FDA-Public Use
  Company Number: MC200700161

PATIENT
  Sex: Male

DRUGS (2)
  1. ANGIOMAX [Suspect]
     Indication: PERCUTANEOUS CORONARY INTERVENTION
     Dosage: BOLUS, IV BOLUS; INFUSION, INTRAVENOUS
     Route: 040
     Dates: start: 20070219, end: 20070219
  2. ANGIOMAX [Suspect]
     Indication: PERCUTANEOUS CORONARY INTERVENTION
     Dosage: BOLUS, IV BOLUS; INFUSION, INTRAVENOUS
     Route: 040
     Dates: start: 20070219, end: 20070219

REACTIONS (1)
  - PUNCTURE SITE HAEMORRHAGE [None]
